FAERS Safety Report 7366315-2 (Version None)
Quarter: 2011Q1

REPORT INFORMATION
  Report Type: 
  Country: None (occurrence: None)
  Receive Date: 20110307
  Receipt Date: 20110222
  Transmission Date: 20110831
  Serious: Yes (Death, Hospitalization)
  Sender: FDA-Public Use
  Company Number: B0703439A

PATIENT
  Age: 72 Year
  Sex: Female

DRUGS (5)
  1. BORTEZOMIB [Suspect]
     Indication: MULTIPLE MYELOMA
  2. CYCLOPHOSPHAMIDE [Suspect]
     Indication: MULTIPLE MYELOMA
  3. MELPHALAN (FORMULATION UNKNOWN) (GENERIC) MELPHALAN) [Suspect]
     Indication: MULTIPLE MYELOMA
  4. DEXAMETHASONE [Suspect]
     Indication: MULTIPLE MYELOMA
  5. PREDNISOLONE [Suspect]
     Indication: MULTIPLE MYELOMA

REACTIONS (3)
  - SPEECH DISORDER [None]
  - HEADACHE [None]
  - GLIOBLASTOMA MULTIFORME [None]
